FAERS Safety Report 8027344-9 (Version None)
Quarter: 2011Q4

REPORT INFORMATION
  Report Type: 
  Country: None (occurrence: None)
  Receive Date: 20111130
  Receipt Date: 20110801
  Transmission Date: 20120403
  Serious: Yes (Hospitalization, Other)
  Sender: FDA-Public Use
  Company Number: US201108000168

PATIENT
  Sex: Female

DRUGS (15)
  1. LOTREL [Concomitant]
  2. FLUTICASONE PROPIONATE [Concomitant]
  3. FUROSEMIDE [Concomitant]
  4. ASPIRIN [Concomitant]
  5. NIACIN [Concomitant]
  6. METFORMIN HCL [Concomitant]
  7. TRAZODONE HCL [Concomitant]
  8. FLEXERIL [Concomitant]
  9. NEURONTIN [Concomitant]
  10. CYMBALTA [Concomitant]
  11. GLUCOTROL [Concomitant]
  12. LIDODERM [Concomitant]
  13. PRAVASTATIN [Concomitant]
  14. BYETTA [Suspect]
  15. PRILOSEC [Concomitant]

REACTIONS (1)
  - PANCREATITIS [None]
